FAERS Safety Report 24132442 (Version 1)
Quarter: 2024Q3

REPORT INFORMATION
  Report Type: Spontaneous
  Country: US (occurrence: None)
  Receive Date: 20240723
  Receipt Date: 20240723
  Transmission Date: 20241016
  Serious: No
  Sender: Public
  Company Number: None

PATIENT
  Age: 79 Year
  Sex: Female

DRUGS (1)
  1. AMBRISENTAN [Suspect]
     Active Substance: AMBRISENTAN
     Indication: Pulmonary hypertension
     Dosage: 10 MG DAILY ORAL
     Route: 048

REACTIONS (3)
  - Viral infection [None]
  - Productive cough [None]
  - Dyspnoea [None]

NARRATIVE: CASE EVENT DATE: 20240723
